FAERS Safety Report 9920735 (Version 1)
Quarter: 2014Q1

REPORT INFORMATION
  Report Type: Spontaneous
  Country: US (occurrence: US)
  Receive Date: 20140224
  Receipt Date: 20140224
  Transmission Date: 20141002
  Serious: No
  Sender: FDA-Public Use
  Company Number: US-NOVEN-14US008716

PATIENT
  Age: 56 Year
  Sex: Female

DRUGS (2)
  1. MINIVELLE [Suspect]
     Indication: PRODUCT USED FOR UNKNOWN INDICATION
     Dosage: 0.05 MG/DAY, TWICE WEEKLY
     Route: 062
  2. MINIVELLE [Suspect]
     Dosage: 0.05 MG/DAY, TWICE WEEKLY
     Route: 062
     Dates: start: 2013

REACTIONS (4)
  - Incorrect drug administration duration [Recovered/Resolved]
  - Accidental exposure to product [Recovered/Resolved]
  - Product quality issue [Not Recovered/Not Resolved]
  - No adverse event [None]
